FAERS Safety Report 12201196 (Version 1)
Quarter: 2016Q1

REPORT INFORMATION
  Report Type: Spontaneous
  Country: US (occurrence: US)
  Receive Date: 20160322
  Receipt Date: 20160322
  Transmission Date: 20160526
  Serious: No
  Sender: FDA-Public Use
  Company Number: US-SA-2015SA060960

PATIENT
  Age: 43 Year
  Sex: Female

DRUGS (1)
  1. NASACORT ALLERGY 24HR [Suspect]
     Active Substance: TRIAMCINOLONE ACETONIDE
     Indication: MULTIPLE ALLERGIES
     Dosage: DRUG STOPPED 8 DAYS LATER?PATIENT TOOK 1SPRAY/NOSTRIL/DAY AND SOMETIMES 2 SPRAY/NOSTRIL/DAY
     Route: 045
     Dates: start: 20150424

REACTIONS (7)
  - Therapeutic response decreased [Unknown]
  - Rhinalgia [Recovered/Resolved]
  - Epistaxis [Recovered/Resolved]
  - Eye pain [Recovered/Resolved]
  - Somnolence [Recovered/Resolved]
  - Unevaluable event [Recovered/Resolved]
  - Asthma [Recovered/Resolved]
